FAERS Safety Report 9638326 (Version 1)
Quarter: 2013Q4

REPORT INFORMATION
  Report Type: Spontaneous
  Country: US (occurrence: US)
  Receive Date: 20131022
  Receipt Date: 20131022
  Transmission Date: 20140711
  Serious: Yes (Other)
  Sender: FDA-Public Use
  Company Number: US-GLAXOSMITHKLINE-A1046182A

PATIENT
  Sex: Male

DRUGS (2)
  1. FLOLAN [Suspect]
     Indication: COR PULMONALE CHRONIC
     Dosage: 50NGKM CONTINUOUS
     Route: 042
     Dates: start: 20020404
  2. ADCIRCA [Concomitant]

REACTIONS (1)
  - Central venous catheterisation [Unknown]
